FAERS Safety Report 8838677 (Version 1)
Quarter: 2012Q4

REPORT INFORMATION
  Report Type: 
  Country: DK (occurrence: GB)
  Receive Date: 20121012
  Receipt Date: 20121012
  Transmission Date: 20130627
  Serious: Yes (Disabling)
  Sender: FDA-Public Use
  Company Number: GB-FRI-1000039398

PATIENT
  Age: 80 Year
  Sex: Male

DRUGS (4)
  1. CITALOPRAM [Suspect]
     Indication: DEPRESSION
     Dosage: 20mg daily
     Route: 048
     Dates: end: 20120910
  2. CITALOPRAM [Suspect]
     Dosage: Overdose: 40mg daily
     Route: 048
     Dates: start: 20120911, end: 20120917
  3. CITALOPRAM [Suspect]
     Indication: DEPRESSION
     Dosage: Overdose: 40mg daily
     Route: 048
     Dates: start: 20120911, end: 20120917
  4. CITALOPRAM [Suspect]
     Dosage: 20 mg
     Route: 048
     Dates: start: 20120918

REACTIONS (5)
  - Mobility decreased [Recovering/Resolving]
  - Faecal incontinence [Recovering/Resolving]
  - Urinary incontinence [Recovering/Resolving]
  - Delirium [Recovering/Resolving]
  - Prescribed overdose [Recovered/Resolved]
